FAERS Safety Report 4490009-4 (Version None)
Quarter: 2004Q4

REPORT INFORMATION
  Report Type: 
  Country: None (occurrence: None)
  Receive Date: 20041101
  Receipt Date: 20041011
  Transmission Date: 20050328
  Serious: Yes (Other)
  Sender: FDA-Public Use
  Company Number: PHEH2004US10925

PATIENT
  Age: 53 Year
  Sex: Female

DRUGS (7)
  1. ZOMETA [Suspect]
     Indication: BREAST CANCER
     Dosage: 4MG QMO
     Route: 042
     Dates: start: 20021001, end: 20040901
  2. XELODA [Concomitant]
     Dates: start: 20030101
  3. TAXOTERE [Concomitant]
     Dates: start: 20030101
  4. DECADRON [Concomitant]
  5. ADRIAMYCIN PFS [Concomitant]
     Dates: start: 20000101
  6. CYTOXAN [Concomitant]
     Dates: start: 20000101
  7. TAXOL [Concomitant]
     Dates: start: 20000101

REACTIONS (6)
  - IMPAIRED HEALING [None]
  - INFECTION [None]
  - OSTEOMYELITIS [None]
  - OSTEONECROSIS [None]
  - TOOTH EXTRACTION [None]
  - WOUND DEBRIDEMENT [None]
